FAERS Safety Report 17526569 (Version 1)
Quarter: 2020Q1

REPORT INFORMATION
  Report Type: Spontaneous
  Country: EG (occurrence: EG)
  Receive Date: 20200311
  Receipt Date: 20200311
  Transmission Date: 20200409
  Serious: Yes (Hospitalization)
  Sender: FDA-Public Use
  Company Number: EG-PFIZER INC-2020102189

PATIENT
  Age: 36 Year
  Sex: Male

DRUGS (3)
  1. VANCOMYCIN [Concomitant]
     Active Substance: VANCOMYCIN
     Indication: PNEUMONIA
     Dosage: 2 G, 2X/DAY (EVERY 12 HOURS)
     Route: 042
     Dates: start: 202001, end: 20200126
  2. ROTACYSTEINE [Concomitant]
     Indication: PNEUMONIA
     Dosage: 600 MG, 3X/DAY (EVERY 8 HOURS)
     Route: 042
     Dates: start: 20200114, end: 20200127
  3. DALACIN [Suspect]
     Active Substance: CLINDAMYCIN
     Indication: PNEUMONIA
     Dosage: 600 MG, 3X/DAY (EVERY 8 HOURS)
     Route: 042
     Dates: start: 20200116

REACTIONS (1)
  - Hepatic enzyme increased [Unknown]

NARRATIVE: CASE EVENT DATE: 20200126
